FAERS Safety Report 20186849 (Version 2)
Quarter: 2022Q1

REPORT INFORMATION
  Report Type: Other
  Country: DE (occurrence: None)
  Receive Date: 20211215
  Receipt Date: 20220228
  Transmission Date: 20220423
  Serious: Yes (Hospitalization, Other)
  Sender: FDA-Public Use
  Company Number: DE-ROCHE-2958884

PATIENT
  Age: 75 Year
  Sex: Male
  Weight: 71 kg

DRUGS (6)
  1. ATEZOLIZUMAB [Suspect]
     Active Substance: ATEZOLIZUMAB
     Indication: Hepatocellular carcinoma
     Dosage: DATE OF LAST DOSE PRIOR TO AE: 20/SEP/2021
     Route: 041
     Dates: start: 20210608
  2. ATEZOLIZUMAB [Suspect]
     Active Substance: ATEZOLIZUMAB
     Route: 042
     Dates: start: 20210330
  3. ZIRABEV [Suspect]
     Active Substance: BEVACIZUMAB-BVZR
     Indication: Hepatocellular carcinoma
     Dosage: DATE OF LAST DOSE PRIOR TO AE: 20/SEP/2021
     Route: 042
     Dates: start: 20210608
  4. ZIRABEV [Suspect]
     Active Substance: BEVACIZUMAB-BVZR
     Route: 042
     Dates: start: 20210330
  5. ALLOPURINOL [Concomitant]
     Active Substance: ALLOPURINOL
     Dates: start: 20211005
  6. CARVEDILOL [Concomitant]
     Active Substance: CARVEDILOL
     Dates: start: 20211005

REACTIONS (6)
  - Cholestasis [Recovered/Resolved]
  - Ascites [Unknown]
  - Prostatic abscess [Unknown]
  - Jaundice [Unknown]
  - Abdominal pain [Recovered/Resolved]
  - Varices oesophageal [Unknown]

NARRATIVE: CASE EVENT DATE: 20210928
